FAERS Safety Report 13746152 (Version 2)
Quarter: 2017Q3

REPORT INFORMATION
  Report Type: Spontaneous
  Country: US (occurrence: US)
  Receive Date: 20170712
  Receipt Date: 20170714
  Transmission Date: 20171127
  Serious: Yes (Other)
  Sender: FDA-Public Use
  Company Number: US-PFIZER INC-2017298205

PATIENT
  Age: 39 Year
  Sex: Male
  Weight: 95.25 kg

DRUGS (4)
  1. LYRICA [Suspect]
     Active Substance: PREGABALIN
     Indication: SPINAL CORD INJURY
     Dosage: 150 MG, DAILY [2 CAPSULES PER DAY]
     Route: 048
  2. OXYCODONE [Concomitant]
     Active Substance: OXYCODONE
     Indication: NEURALGIA
     Dosage: 60 MG, 2X/DAY [2 TABLETS ] [2 IN MORNING AND 2 AT NIGHT]
     Route: 048
     Dates: end: 201707
  3. LYRICA [Suspect]
     Active Substance: PREGABALIN
     Indication: NEURALGIA
     Dosage: 375 MG, DAILY [5 CAPSULES PER DAY ]
     Route: 048
     Dates: start: 20170706
  4. OXYCODONE [Concomitant]
     Active Substance: OXYCODONE
     Indication: NEURALGIA
     Dosage: 40 MG, 2X/DAY [1 IN THE MORNING AND 1 AT NIGHT]
     Route: 048
     Dates: end: 201707

REACTIONS (4)
  - Multiple sclerosis [Not Recovered/Not Resolved]
  - Therapeutic response unexpected [Not Recovered/Not Resolved]
  - Dyskinesia [Recovered/Resolved]
  - Pre-existing condition improved [Not Recovered/Not Resolved]

NARRATIVE: CASE EVENT DATE: 201707
